FAERS Safety Report 18922812 (Version 2)
Quarter: 2021Q1

REPORT INFORMATION
  Report Type: Spontaneous
  Country: US (occurrence: US)
  Receive Date: 20210222
  Receipt Date: 20210317
  Transmission Date: 20210420
  Serious: Yes (Hospitalization, Other)
  Sender: FDA-Public Use
  Company Number: US-SA-2021SA059772

PATIENT
  Age: 59 Year
  Sex: Female

DRUGS (18)
  1. MUCINEX [Concomitant]
     Active Substance: GUAIFENESIN
  2. PROBIOTICS NOS [Concomitant]
     Active Substance: PROBIOTICS NOS
  3. ESTRADIOL. [Concomitant]
     Active Substance: ESTRADIOL
  4. POTASSIUM [Concomitant]
     Active Substance: POTASSIUM
  5. TRAMADOL. [Concomitant]
     Active Substance: TRAMADOL
  6. VITAMIN D3 [Concomitant]
     Active Substance: CHOLECALCIFEROL
  7. RHINOCORT [Concomitant]
     Active Substance: BUDESONIDE
  8. TRAZODONE [Concomitant]
     Active Substance: TRAZODONE HYDROCHLORIDE
  9. OMEGA?3 NOS [Concomitant]
     Active Substance: OMEGA-3 FATTY ACIDS
  10. FOLIC ACID. [Concomitant]
     Active Substance: FOLIC ACID
  11. PROGESTERONE. [Concomitant]
     Active Substance: PROGESTERONE
  12. ADVIL [Concomitant]
     Active Substance: IBUPROFEN
  13. GABAPENTIN. [Concomitant]
     Active Substance: GABAPENTIN
  14. DUPIXENT [Suspect]
     Active Substance: DUPILUMAB
     Dosage: 300 MG, QOW
     Route: 058
  15. DUPIXENT [Suspect]
     Active Substance: DUPILUMAB
     Indication: DERMATITIS ATOPIC
     Dosage: 300 MG, QOW
     Route: 058
     Dates: start: 20200723, end: 202012
  16. RAMIPRIL. [Concomitant]
     Active Substance: RAMIPRIL
  17. STELARA [Concomitant]
     Active Substance: USTEKINUMAB
  18. ZYRTEC [Concomitant]
     Active Substance: CETIRIZINE HYDROCHLORIDE

REACTIONS (20)
  - Respiratory disorder [Recovering/Resolving]
  - Cough [Recovering/Resolving]
  - Acute kidney injury [Unknown]
  - Dyspnoea [Recovering/Resolving]
  - Acute respiratory failure [Unknown]
  - Hyponatraemia [Unknown]
  - Rhinitis allergic [Unknown]
  - Pyrexia [Recovering/Resolving]
  - Glucose tolerance impaired [Unknown]
  - Condition aggravated [Recovering/Resolving]
  - Chest discomfort [Recovering/Resolving]
  - Diarrhoea [Unknown]
  - Hypochloraemia [Unknown]
  - Leukocytosis [Unknown]
  - COVID-19 pneumonia [Not Recovered/Not Resolved]
  - Asthma [Recovering/Resolving]
  - Hypokalaemia [Unknown]
  - Hypovolaemia [Unknown]
  - Breath sounds abnormal [Recovering/Resolving]
  - Hypoxia [Unknown]

NARRATIVE: CASE EVENT DATE: 2020
